FAERS Safety Report 13090782 (Version 2)
Quarter: 2017Q1

REPORT INFORMATION
  Report Type: Spontaneous
  Country: US (occurrence: US)
  Receive Date: 20170106
  Receipt Date: 20170308
  Transmission Date: 20170428
  Serious: No
  Sender: FDA-Public Use
  Company Number: US-ASTRAZENECA-2017SE01274

PATIENT
  Age: 53 Year
  Sex: Male
  Weight: 120.2 kg

DRUGS (1)
  1. SYMBICORT [Suspect]
     Active Substance: BUDESONIDE\FORMOTEROL FUMARATE DIHYDRATE
     Indication: ILL-DEFINED DISORDER
     Dosage: 160/4.5 MCG, TWO PUFFS TWICE DAILY
     Route: 055
     Dates: start: 2016

REACTIONS (5)
  - Drug ineffective [Unknown]
  - Fatigue [Unknown]
  - Drug dose omission [Unknown]
  - Sleep apnoea syndrome [Unknown]
  - Device issue [Unknown]

NARRATIVE: CASE EVENT DATE: 2016
